FAERS Safety Report 21642443 (Version 1)
Quarter: 2022Q4

REPORT INFORMATION
  Report Type: Spontaneous
  Country: FR (occurrence: FR)
  Receive Date: 20221125
  Receipt Date: 20221125
  Transmission Date: 20230113
  Serious: Yes (Other)
  Sender: FDA-Public Use
  Company Number: FR-SA-SAC20221123000720

PATIENT
  Age: 64 Year
  Sex: Male

DRUGS (2)
  1. PRIMAQUINE PHOSPHATE [Suspect]
     Active Substance: PRIMAQUINE PHOSPHATE
     Indication: Plasmodium malariae infection
     Dosage: 30 MG, QD
     Route: 065
     Dates: start: 20181116, end: 20181119
  2. CHLOROQUINE [Concomitant]
     Active Substance: CHLOROQUINE
     Dosage: UNK

REACTIONS (3)
  - Type I hypersensitivity [Not Recovered/Not Resolved]
  - Angioedema [Not Recovered/Not Resolved]
  - Urticaria [Not Recovered/Not Resolved]

NARRATIVE: CASE EVENT DATE: 20181116
